FAERS Safety Report 6383732-8 (Version None)
Quarter: 2009Q3

REPORT INFORMATION
  Report Type: 
  Country: None (occurrence: None)
  Receive Date: 20090929
  Receipt Date: 20090929
  Transmission Date: 20100115
  Serious: No
  Sender: FDA-Public Use
  Company Number: None

PATIENT
  Sex: Male
  Weight: 136.0791 kg

DRUGS (2)
  1. PROAIR HFA [Suspect]
     Indication: DRUG INEFFECTIVE
     Dosage: 90MCG QID INHAL
     Route: 055
  2. PROAIR HFA [Suspect]

REACTIONS (2)
  - DEVICE FAILURE [None]
  - PRODUCT QUALITY ISSUE [None]
